FAERS Safety Report 8791331 (Version 1)
Quarter: 2012Q4

REPORT INFORMATION
  Report Type: Spontaneous
  Country: US (occurrence: None)
  Receive Date: 20120911
  Receipt Date: 20120911
  Transmission Date: 20130627
  Serious: Yes (Death)
  Sender: FDA-Public Use
  Company Number: UTC-022701

PATIENT
  Age: 10 Year
  Sex: Female

DRUGS (3)
  1. TYVASO (6 MICROGRAM, AEROSOL FOR INHALATION) (TREPROSTINIL SODIUM) [Suspect]
     Indication: ASSOCIATED WITH PULMONARY ARTERIAL HYPERTENSION
     Dosage: 18 to 54 mcgs (4 in 1 D), Inhalation
     Route: 055
  2. SILDENAFIL [Concomitant]
  3. AMBRISENTAN [Concomitant]

REACTIONS (2)
  - Sudden death [None]
  - Haemoptysis [None]
